FAERS Safety Report 13833487 (Version 3)
Quarter: 2018Q2

REPORT INFORMATION
  Report Type: Report from Study
  Country: US (occurrence: US)
  Receive Date: 20170804
  Receipt Date: 20180517
  Transmission Date: 20180711
  Serious: Yes (Other)
  Sender: FDA-Public Use
  Company Number: US-ROCHE-1972275

PATIENT

DRUGS (3)
  1. NAB-PACLITAXEL [Suspect]
     Active Substance: PACLITAXEL
     Indication: NEOPLASM MALIGNANT
     Dosage: 50-150 MG/M2; DAY 1, 8, 15
     Route: 042
  2. GEMCITABINE [Suspect]
     Active Substance: GEMCITABINE\GEMCITABINE HYDROCHLORIDE
     Indication: NEOPLASM MALIGNANT
     Dosage: DAYS 1, 8, AND 15
     Route: 042
  3. BEVACIZUMAB. [Suspect]
     Active Substance: BEVACIZUMAB
     Indication: NEOPLASM MALIGNANT
     Dosage: 5-15 MG/KG ; ON DAY 1, 15 EVERY 28 DAYS
     Route: 042

REACTIONS (17)
  - Dehydration [Unknown]
  - Cellulitis [Unknown]
  - Diarrhoea [Unknown]
  - Nausea [Unknown]
  - Gastrointestinal perforation [Unknown]
  - Anaemia [Unknown]
  - Hypotension [Unknown]
  - Thrombocytopenia [Unknown]
  - Dysphagia [Unknown]
  - Dyspnoea [Unknown]
  - Neutropenia [Unknown]
  - Fatigue [Unknown]
  - Infection [Unknown]
  - Bacteraemia [Unknown]
  - Rectal haemorrhage [Unknown]
  - Lymphoedema [Unknown]
  - Pyrexia [Unknown]
